FAERS Safety Report 4721503-6 (Version None)
Quarter: 2005Q3

REPORT INFORMATION
  Report Type: 
  Country: None (occurrence: None)
  Receive Date: 20050721
  Receipt Date: 20041021
  Transmission Date: 20060218
  Serious: No
  Sender: FDA-Public Use
  Company Number: US-BRISTOL-MYERS SQUIBB COMPANY-12740064

PATIENT
  Age: 37 Year
  Sex: Male

DRUGS (1)
  1. COUMADIN [Suspect]
     Dates: start: 19960101, end: 19990101

REACTIONS (1)
  - DRUG INEFFECTIVE [None]
